FAERS Safety Report 10041158 (Version 2)
Quarter: 2014Q2

REPORT INFORMATION
  Report Type: Spontaneous
  Country: DK (occurrence: FR)
  Receive Date: 20140327
  Receipt Date: 20140411
  Transmission Date: 20141212
  Serious: Yes (Hospitalization)
  Sender: FDA-Public Use
  Company Number: FR-FRI-1000065851

PATIENT
  Age: 49 Year
  Sex: Female
  Weight: 55 kg

DRUGS (3)
  1. ESCITALOPRAM [Suspect]
     Indication: DEPRESSION
     Dosage: 20 MG
     Dates: start: 20140108, end: 20140220
  2. ESCITALOPRAM [Suspect]
     Indication: ANXIETY
  3. LEXOMIL [Concomitant]
     Dosage: 0.5 DF
     Dates: start: 20140108, end: 20140220

REACTIONS (1)
  - Withdrawal syndrome [Recovered/Resolved]
